FAERS Safety Report 7488194-5 (Version None)
Quarter: 2011Q2

REPORT INFORMATION
  Report Type: 
  Country: None (occurrence: None)
  Receive Date: 20110518
  Receipt Date: 20110505
  Transmission Date: 20111010
  Serious: Yes (Hospitalization)
  Sender: FDA-Public Use
  Company Number: PHHY2011FR39259

PATIENT
  Sex: Female

DRUGS (4)
  1. TEGRETOL [Suspect]
     Indication: EPILEPSY
     Dosage: 200 MG TWICE DAILY
  2. URBANYL [Concomitant]
  3. ALEPSAL [Suspect]
     Indication: EPILEPSY
     Dosage: 1 DF, TID
     Route: 048
  4. TANAKAN [Concomitant]
     Dosage: UNK

REACTIONS (11)
  - HEMIPLEGIA [None]
  - CEREBRAL ATROPHY [None]
  - PSYCHOMOTOR RETARDATION [None]
  - CEREBROVASCULAR ACCIDENT [None]
  - DYSSTASIA [None]
  - DYSARTHRIA [None]
  - FALL [None]
  - HEMIPARESIS [None]
  - HYPOTHERMIA [None]
  - ANTICONVULSANT DRUG LEVEL INCREASED [None]
  - SOMNOLENCE [None]
